FAERS Safety Report 9381720 (Version 1)
Quarter: 2013Q3

REPORT INFORMATION
  Report Type: Report from Study
  Country: ES (occurrence: ES)
  Receive Date: 20130703
  Receipt Date: 20130703
  Transmission Date: 20140515
  Serious: Yes (Death, Other)
  Sender: FDA-Public Use
  Company Number: ES-ASTELLAS-2013EU005605

PATIENT
  Age: 35 Month
  Sex: Female

DRUGS (7)
  1. TACROLIMUS SYSTEMIC [Suspect]
     Indication: LIVER TRANSPLANT
     Dosage: UNK
     Route: 065
  2. TACROLIMUS SYSTEMIC [Suspect]
     Indication: INTESTINAL TRANSPLANT
  3. BASILIXIMAB [Concomitant]
     Indication: LIVER TRANSPLANT
     Dosage: UNK
     Route: 065
  4. BASILIXIMAB [Concomitant]
     Indication: INTESTINAL TRANSPLANT
  5. CORTICOSTEROID NOS [Concomitant]
     Indication: LIVER TRANSPLANT
     Dosage: UNK
     Route: 065
  6. CORTICOSTEROID NOS [Concomitant]
     Indication: INTESTINAL TRANSPLANT
  7. GANCICLOVIR [Concomitant]
     Indication: PROPHYLAXIS
     Dosage: UNK
     Route: 065

REACTIONS (3)
  - Off label use [Unknown]
  - Post transplant lymphoproliferative disorder [Fatal]
  - Epstein-Barr virus infection [Unknown]
